FAERS Safety Report 6797660-7 (Version None)
Quarter: 2010Q2

REPORT INFORMATION
  Report Type: 
  Country: None (occurrence: None)
  Receive Date: 20100622
  Receipt Date: 20100614
  Transmission Date: 20101027
  Serious: Yes (Life-Threatening)
  Sender: FDA-Public Use
  Company Number: HA10-133-AE

PATIENT
  Sex: Female

DRUGS (1)
  1. METFORMIN HCL [Suspect]
     Dosage: ORAL
     Route: 048
     Dates: start: 20100101

REACTIONS (4)
  - ANAPHYLACTIC SHOCK [None]
  - FOOD ALLERGY [None]
  - IODINE ALLERGY [None]
  - PRODUCT SUBSTITUTION ISSUE [None]
